FAERS Safety Report 6882648-8 (Version None)
Quarter: 2010Q3

REPORT INFORMATION
  Report Type: 
  Country: None (occurrence: None)
  Receive Date: 20100729
  Receipt Date: 20100722
  Transmission Date: 20110219
  Serious: Yes (Hospitalization)
  Sender: FDA-Public Use
  Company Number: JP-ROCHE-709655

PATIENT
  Sex: Male
  Weight: 47 kg

DRUGS (6)
  1. AVASTIN [Suspect]
     Indication: COLON CANCER METASTATIC
     Route: 041
     Dates: start: 20091221, end: 20100210
  2. AVASTIN [Suspect]
     Route: 041
     Dates: start: 20100510, end: 20100524
  3. TOPOTECAN [Concomitant]
     Route: 041
     Dates: start: 20100510, end: 20100524
  4. FLUOROURACIL [Concomitant]
     Route: 040
     Dates: start: 20100510, end: 20100524
  5. FLUOROURACIL [Concomitant]
     Route: 041
     Dates: start: 20100510, end: 20100501
  6. ISOVORIN [Concomitant]
     Route: 041
     Dates: start: 20100510, end: 20100524

REACTIONS (2)
  - FISTULA [None]
  - PYOTHORAX [None]
